FAERS Safety Report 17401630 (Version 1)
Quarter: 2020Q1

REPORT INFORMATION
  Report Type: Spontaneous
  Country: US (occurrence: US)
  Receive Date: 20200209
  Receipt Date: 20200209
  Transmission Date: 20200409
  Serious: Yes (Other)
  Sender: FDA-Public Use
  Company Number: None

PATIENT
  Age: 56 Year
  Sex: Female
  Weight: 86.4 kg

DRUGS (12)
  1. SYNTHROID [Concomitant]
     Active Substance: LEVOTHYROXINE SODIUM
  2. PAXIL [Concomitant]
     Active Substance: PAROXETINE HYDROCHLORIDE
  3. NORCO [Concomitant]
     Active Substance: ACETAMINOPHEN\HYDROCODONE BITARTRATE
  4. OXYBUTYNIN. [Concomitant]
     Active Substance: OXYBUTYNIN CHLORIDE
  5. ASPIRIN. [Concomitant]
     Active Substance: ASPIRIN
  6. LOPRESSOR [Concomitant]
     Active Substance: METOPROLOL TARTRATE
  7. PIQRAY [Suspect]
     Active Substance: ALPELISIB
     Indication: BREAST CANCER
     Route: 048
     Dates: start: 20191024, end: 20200208
  8. SINGULAIR [Concomitant]
     Active Substance: MONTELUKAST SODIUM
  9. METFORMIN [Concomitant]
     Active Substance: METFORMIN HYDROCHLORIDE
  10. ZOMETA [Concomitant]
     Active Substance: ZOLEDRONIC ACID
  11. LIPITOR [Concomitant]
     Active Substance: ATORVASTATIN CALCIUM
  12. LASIX [Concomitant]
     Active Substance: FUROSEMIDE

REACTIONS (1)
  - Disease progression [None]

NARRATIVE: CASE EVENT DATE: 20200209
